FAERS Safety Report 6588788-5 (Version None)
Quarter: 2010Q1

REPORT INFORMATION
  Report Type: 
  Country: None (occurrence: None)
  Receive Date: 20100218
  Receipt Date: 20100210
  Transmission Date: 20100710
  Serious: Yes (Other)
  Sender: FDA-Public Use
  Company Number: JP-JNJFOC-20100202623

PATIENT
  Age: 77 Year
  Sex: Female

DRUGS (1)
  1. DUROTEP MT [Suspect]
     Indication: OSTEOARTHRITIS
     Route: 062

REACTIONS (3)
  - ASPIRATION [None]
  - LOSS OF CONSCIOUSNESS [None]
  - OFF LABEL USE [None]
